FAERS Safety Report 7905814-9 (Version None)
Quarter: 2011Q4

REPORT INFORMATION
  Report Type: 
  Country: None (occurrence: None)
  Receive Date: 20111108
  Receipt Date: 20111028
  Transmission Date: 20120403
  Serious: No
  Sender: FDA-Public Use
  Company Number: 1000022653

PATIENT
  Age: 43 Year
  Sex: Female

DRUGS (4)
  1. ALBUTEROL (ALBUTEROL) (ALBUTEROL) [Concomitant]
  2. SYMBICORT (BUDESONIDE W/FORMOTEROL FUMARATE) (BUDESONIDE W/FORMOTEROL [Concomitant]
  3. VIIBRYD [Suspect]
     Indication: DEPRESSION
     Dosage: 10 MG (10 MG, 1 IN 1 D), ORAL
     Route: 048
     Dates: start: 20110728
  4. VIIBRYD [Suspect]
     Indication: DEPRESSION
     Dosage: 10 MG (10 MG, 1 IN 1 D), ORAL
     Route: 048
     Dates: end: 20110808

REACTIONS (5)
  - SYNCOPE [None]
  - BLOOD MAGNESIUM [None]
  - DIARRHOEA [None]
  - VOMITING [None]
  - NAUSEA [None]
